FAERS Safety Report 25283687 (Version 3)
Quarter: 2025Q2

REPORT INFORMATION
  Report Type: Spontaneous
  Country: AU (occurrence: AU)
  Receive Date: 20250508
  Receipt Date: 20250624
  Transmission Date: 20250716
  Serious: No
  Sender: PFIZER
  Company Number: AU-PFIZER INC-202500089756

PATIENT
  Age: 60 Year
  Sex: Male

DRUGS (1)
  1. CAVERJECT IMPULSE [Suspect]
     Active Substance: ALPROSTADIL

REACTIONS (2)
  - Device connection issue [Unknown]
  - Device breakage [Unknown]
